FAERS Safety Report 11537724 (Version 2)
Quarter: 2015Q3

REPORT INFORMATION
  Report Type: Spontaneous
  Country: US (occurrence: US)
  Receive Date: 20150922
  Receipt Date: 20150928
  Transmission Date: 20151125
  Serious: No
  Sender: FDA-Public Use
  Company Number: US-PFIZER INC-2015317921

PATIENT
  Sex: Male

DRUGS (3)
  1. ARGINMAX [Suspect]
     Active Substance: AMINO ACIDS\HERBALS\MINERALS\VITAMINS
     Dosage: UNK
  2. VIAGRA [Suspect]
     Active Substance: SILDENAFIL CITRATE
     Dosage: UNK
  3. ENZYTE [Suspect]
     Active Substance: HERBALS
     Dosage: UNK

REACTIONS (1)
  - Drug effect incomplete [Unknown]
